APPROVED DRUG PRODUCT: GALZIN
Active Ingredient: ZINC ACETATE
Strength: EQ 50MG ZINC
Dosage Form/Route: CAPSULE;ORAL
Application: N020458 | Product #002
Applicant: ETON PHARMACEUTICALS INC
Approved: Jan 28, 1997 | RLD: Yes | RS: Yes | Type: RX